FAERS Safety Report 6895607-6 (Version None)
Quarter: 2010Q3

REPORT INFORMATION
  Report Type: 
  Country: None (occurrence: None)
  Receive Date: 20100802
  Receipt Date: 20100729
  Transmission Date: 20110219
  Serious: Yes (Death)
  Sender: FDA-Public Use
  Company Number: PHHY2010VE50054

PATIENT
  Sex: Female

DRUGS (2)
  1. GLEEVEC [Suspect]
     Indication: CHRONIC MYELOID LEUKAEMIA
     Dosage: 200 MG, UNK
     Dates: start: 20100101
  2. GLEEVEC [Suspect]
     Dosage: 300 MG, UNK

REACTIONS (2)
  - ARRHYTHMIA [None]
  - CARDIAC FAILURE [None]
